FAERS Safety Report 4536526-X (Version None)
Quarter: 2004Q4

REPORT INFORMATION
  Report Type: 
  Country: None (occurrence: None)
  Receive Date: 20041222
  Receipt Date: 20041222
  Transmission Date: 20050328
  Serious: Yes (Life-Threatening, Other)
  Sender: FDA-Public Use
  Company Number: None

PATIENT
  Age: 39 Year
  Sex: Female

DRUGS (4)
  1. AFRIN [Suspect]
     Indication: NASOPHARYNGITIS
     Dosage: 1 SPRAY TID NAS AER SPRA
     Route: 045
     Dates: start: 20040803, end: 20040803
  2. AFRIN [Suspect]
     Indication: UPPER RESPIRATORY TRACT INFECTION
     Dosage: 1 SPRAY TID NAS AER SPRA
     Route: 045
     Dates: start: 20040803, end: 20040803
  3. PSEUDOEPHEDRINE HCL [Suspect]
     Indication: UPPER RESPIRATORY TRACT INFECTION
     Dosage: 60 MG PO ORAL
     Route: 048
     Dates: start: 20040803, end: 20040803
  4. ORTHO [Concomitant]

REACTIONS (7)
  - COMA [None]
  - DIZZINESS [None]
  - GRAND MAL CONVULSION [None]
  - IMPAIRED DRIVING ABILITY [None]
  - INFUSION RELATED REACTION [None]
  - SOMNOLENCE [None]
  - VISUAL DISTURBANCE [None]
